FAERS Safety Report 16384538 (Version 2)
Quarter: 2019Q2

REPORT INFORMATION
  Report Type: Spontaneous
  Country: DE (occurrence: DE)
  Receive Date: 20190603
  Receipt Date: 20190617
  Transmission Date: 20190711
  Serious: Yes (Other)
  Sender: FDA-Public Use
  Company Number: DE-MYLANLABS-2019M1051234

PATIENT
  Sex: Female

DRUGS (4)
  1. VITAMIN D                          /07503901/ [Concomitant]
     Active Substance: VITAMIN D NOS
     Dosage: 20.000 U WEEKLY
  2. LODOTRA [Interacting]
     Active Substance: PREDNISONE
     Indication: RHEUMATOID ARTHRITIS
     Dosage: 1 MG AND 2 MG AT A DAILY DOSE OF 3 MG/STEPWISE REDUCED FROM 4 MG TO 3 MG AND THEN TO 2 MG.
  3. CANDESARTAN. [Suspect]
     Active Substance: CANDESARTAN
     Indication: HYPERTENSION
     Dosage: 4 MG WEEKLY
     Dates: end: 201810
  4. L-THYROXIN                         /00068001/ [Concomitant]
     Active Substance: LEVOTHYROXINE
     Dosage: 100 UG WEEKLY

REACTIONS (10)
  - Amnesia [Recovered/Resolved]
  - Headache [Recovered/Resolved]
  - Drug interaction [Recovered/Resolved]
  - Thinking abnormal [Recovered/Resolved]
  - Hypertensive crisis [Recovered/Resolved]
  - Tinnitus [Not Recovered/Not Resolved]
  - Hypertension [Recovered/Resolved]
  - Disturbance in attention [Recovered/Resolved]
  - Dizziness [Recovered/Resolved]
  - Aphasia [Recovered/Resolved]

NARRATIVE: CASE EVENT DATE: 2018
